FAERS Safety Report 7313412-3 (Version None)
Quarter: 2011Q1

REPORT INFORMATION
  Report Type: 
  Country: None (occurrence: None)
  Receive Date: 20110225
  Receipt Date: 20110222
  Transmission Date: 20110831
  Serious: Yes (Hospitalization, Other)
  Sender: FDA-Public Use
  Company Number: US-PFIZER INC-2010157031

PATIENT
  Sex: Female

DRUGS (1)
  1. CHANTIX [Suspect]
     Indication: SMOKING CESSATION THERAPY
     Dosage: STARTER PACK AND CONTINUOUS PACK
     Dates: start: 20080204, end: 20080329

REACTIONS (3)
  - DEPRESSION [None]
  - ANXIETY DISORDER [None]
  - SUICIDAL IDEATION [None]
